FAERS Safety Report 7393823-0 (Version None)
Quarter: 2011Q1

REPORT INFORMATION
  Report Type: 
  Country: None (occurrence: None)
  Receive Date: 20110330
  Receipt Date: 20110330
  Transmission Date: 20110831
  Serious: Yes (Hospitalization, Other)
  Sender: FDA-Public Use
  Company Number: None

PATIENT
  Age: 5 Year
  Sex: Female
  Weight: 19.2 kg

DRUGS (5)
  1. ORAPRED [Concomitant]
  2. NAPROXEN [Concomitant]
  3. INDOMETHACIN [Concomitant]
  4. ZANTAC [Concomitant]
  5. RILONACEPT 220 MG [Suspect]
     Indication: JUVENILE ARTHRITIS
     Dosage: 38.72 ONCE A WEEK SQ
     Route: 058
     Dates: start: 20090826, end: 20100505

REACTIONS (18)
  - RESPIRATORY TRACT INFECTION [None]
  - ABNORMAL BEHAVIOUR [None]
  - PRODUCTIVE COUGH [None]
  - HIRSUTISM [None]
  - PYREXIA [None]
  - ARTHRALGIA [None]
  - RIGHT VENTRICULAR HYPERTROPHY [None]
  - HYPERTENSION [None]
  - FATIGUE [None]
  - PULMONARY HYPERTENSION [None]
  - PERICARDIAL EFFUSION [None]
  - INTERSTITIAL LUNG DISEASE [None]
  - EJECTION FRACTION DECREASED [None]
  - GINGIVAL HYPERPLASIA [None]
  - PULMONARY VENO-OCCLUSIVE DISEASE [None]
  - DYSPNOEA EXERTIONAL [None]
  - DILATATION ATRIAL [None]
  - PULMONARY VALVE INCOMPETENCE [None]
